FAERS Safety Report 18330606 (Version 2)
Quarter: 2020Q4

REPORT INFORMATION
  Report Type: Spontaneous
  Country: BR (occurrence: BR)
  Receive Date: 20200930
  Receipt Date: 20201015
  Transmission Date: 20210113
  Serious: Yes (Other)
  Sender: FDA-Public Use
  Company Number: NVSC2020BR263945

PATIENT
  Sex: Female

DRUGS (1)
  1. GLAUTIMOL [Suspect]
     Active Substance: TIMOLOL MALEATE
     Indication: GLAUCOMA
     Dosage: UNK, SOLUTION VIAL, 5 ML
     Route: 065

REACTIONS (1)
  - Drug dependence [Unknown]
